FAERS Safety Report 19266548 (Version 1)
Quarter: 2021Q2

REPORT INFORMATION
  Report Type: Spontaneous
  Country: US (occurrence: US)
  Receive Date: 20210517
  Receipt Date: 20210517
  Transmission Date: 20210717
  Serious: No
  Sender: FDA-Public Use
  Company Number: US-SA-2021SA158189

PATIENT
  Age: 80 Year
  Sex: Female

DRUGS (1)
  1. ALLEGRA?D [Suspect]
     Active Substance: FEXOFENADINE HYDROCHLORIDE\PSEUDOEPHEDRINE HYDROCHLORIDE
     Indication: HYPERSENSITIVITY
     Dosage: 60 MG, BID
     Route: 065

REACTIONS (5)
  - Rhinorrhoea [Unknown]
  - Cough [Unknown]
  - Sneezing [Unknown]
  - Product dose omission issue [Unknown]
  - Product use issue [Unknown]

NARRATIVE: CASE EVENT DATE: 20210509
